FAERS Safety Report 14168161 (Version 1)
Quarter: 2017Q4

REPORT INFORMATION
  Report Type: Spontaneous
  Country: US (occurrence: US)
  Receive Date: 20171108
  Receipt Date: 20171108
  Transmission Date: 20180321
  Serious: No
  Sender: FDA-Public Use
  Company Number: US-AMGEN-USASP2017167362

PATIENT
  Age: 61 Year
  Sex: Male

DRUGS (14)
  1. ENBREL [Suspect]
     Active Substance: ETANERCEPT
     Indication: RHEUMATOID ARTHRITIS
     Dosage: 50 MG, QWK
     Route: 058
     Dates: start: 20170918
  2. CLORAZEPATE DIPOT [Concomitant]
     Dosage: 7.5 MG, UNK
  3. TOPAMAX [Concomitant]
     Active Substance: TOPIRAMATE
     Dosage: UNK
  4. PREDNISONE. [Concomitant]
     Active Substance: PREDNISONE
     Dosage: 5 MG, UNK
  5. LYRICA [Concomitant]
     Active Substance: PREGABALIN
     Dosage: UNK
  6. FUROSEMIDE. [Concomitant]
     Active Substance: FUROSEMIDE
     Dosage: 20 MG, UNK
  7. XARELTO [Concomitant]
     Active Substance: RIVAROXABAN
     Dosage: 20 MG, UNK
  8. ZOLPIDEM [Concomitant]
     Active Substance: ZOLPIDEM\ZOLPIDEM TARTRATE
     Dosage: 5 MG, UNK
  9. METHOTREXATE. [Concomitant]
     Active Substance: METHOTREXATE
     Dosage: UNK
  10. OXYCONTIN [Concomitant]
     Active Substance: OXYCODONE HYDROCHLORIDE
     Dosage: 10 MG, UNK
  11. TRAMADOL HCL [Concomitant]
     Active Substance: TRAMADOL HYDROCHLORIDE
     Dosage: 50 MG, UNK
  12. CYMBALTA [Concomitant]
     Active Substance: DULOXETINE HYDROCHLORIDE
     Dosage: UNK
  13. DULOXETINE. [Concomitant]
     Active Substance: DULOXETINE
     Dosage: 30 MG, UNK
  14. OMEPRAZOLE. [Concomitant]
     Active Substance: OMEPRAZOLE
     Dosage: 40 MG, UNK

REACTIONS (1)
  - Pain [Not Recovered/Not Resolved]

NARRATIVE: CASE EVENT DATE: 2017
